FAERS Safety Report 6111846-6 (Version None)
Quarter: 2009Q1

REPORT INFORMATION
  Report Type: 
  Country: None (occurrence: None)
  Receive Date: 20090311
  Receipt Date: 20090303
  Transmission Date: 20090719
  Serious: Yes (Hospitalization)
  Sender: FDA-Public Use
  Company Number: DE-ASTRAZENECA-2009PK00731

PATIENT
  Age: 80 Year
  Sex: Female
  Weight: 73 kg

DRUGS (8)
  1. BELOC ZOK [Suspect]
     Indication: TACHYARRHYTHMIA
     Route: 048
     Dates: start: 20080801, end: 20081020
  2. RAMIPRIL [Suspect]
     Indication: CARDIAC FAILURE CHRONIC
     Route: 048
     Dates: start: 20080901, end: 20081020
  3. FUROSEMIDE [Suspect]
     Indication: CARDIAC FAILURE CHRONIC
     Route: 048
     Dates: start: 20080901
  4. DIGITOXIN [Concomitant]
     Indication: TACHYARRHYTHMIA
     Route: 048
     Dates: start: 20080801
  5. CIPRAMIL [Concomitant]
     Indication: DEPRESSION
     Route: 048
  6. PANTOZOL [Concomitant]
     Indication: GASTRITIS
     Route: 048
     Dates: start: 20080801
  7. METOCLOPRAMIDE HYDROCHLORIDE [Concomitant]
     Indication: NAUSEA
     Route: 048
  8. FALITHROM ^HEXAL^ [Concomitant]
     Indication: PULMONARY EMBOLISM
     Route: 048
     Dates: start: 20080801

REACTIONS (1)
  - HYPOTENSION [None]
